FAERS Safety Report 21299229 (Version 1)
Quarter: 2022Q3

REPORT INFORMATION
  Report Type: Spontaneous
  Country: US (occurrence: None)
  Receive Date: 20220906
  Receipt Date: 20220906
  Transmission Date: 20221027
  Serious: No
  Sender: FDA-Public Use
  Company Number: None

PATIENT

DRUGS (5)
  1. HYDROXYZINE HYDROCHLORIDE [Suspect]
     Active Substance: HYDROXYZINE HYDROCHLORIDE
  2. MELATONIN [Suspect]
     Active Substance: MELATONIN
  3. CARBAMAZEPINE [Suspect]
     Active Substance: CARBAMAZEPINE
  4. PAXLOVID [Suspect]
     Active Substance: NIRMATRELVIR\RITONAVIR
     Route: 048
  5. RITONAVIR [Suspect]
     Active Substance: RITONAVIR

REACTIONS (8)
  - Paraesthesia [None]
  - Malaise [None]
  - Drug level increased [None]
  - Therapy cessation [None]
  - COVID-19 [None]
  - Drug interaction [None]
  - Confusional state [None]
  - Contraindicated product administered [None]
